FAERS Safety Report 12315861 (Version 1)
Quarter: 2016Q2

REPORT INFORMATION
  Report Type: Spontaneous
  Country: US (occurrence: US)
  Receive Date: 20160428
  Receipt Date: 20160428
  Transmission Date: 20160815
  Serious: No
  Sender: FDA-Public Use
  Company Number: US-MDT-ADR-2016-00201

PATIENT
  Age: 64 Year
  Sex: Female

DRUGS (4)
  1. COMPOUNDED BACLOFEN [Suspect]
     Active Substance: BACLOFEN
     Dosage: 86.257MCG/DAY
     Route: 037
     Dates: start: 20160127, end: 20160127
  2. DILAUDID [Suspect]
     Active Substance: HYDROMORPHONE HYDROCHLORIDE
     Dosage: 20.004MG/DAY
     Route: 037
     Dates: start: 20160127
  3. CLONIDINE. [Suspect]
     Active Substance: CLONIDINE
     Dosage: 19.635MCG/DAY
     Route: 037
     Dates: start: 20160127
  4. COMPOUNDED BACLOFEN [Suspect]
     Active Substance: BACLOFEN
     Dosage: 406.62MCG/DAY
     Route: 037
     Dates: start: 20160127

REACTIONS (1)
  - Drug administration error [Recovered/Resolved]

NARRATIVE: CASE EVENT DATE: 20160127
